FAERS Safety Report 10101754 (Version 5)
Quarter: 2014Q3

REPORT INFORMATION
  Report Type: Spontaneous
  Country: DE (occurrence: None)
  Receive Date: 20140421
  Receipt Date: 20140829
  Transmission Date: 20150326
  Serious: Yes (Hospitalization, Other)
  Sender: FDA-Public Use
  Company Number: 2014DE003199

PATIENT
  Age: 70 Year
  Sex: Male
  Weight: 80 kg

DRUGS (3)
  1. ASS (ACETYLSALICYLIC ACID) [Concomitant]
  2. NEBILET (NEBIVOLOL HYDROCHLORIDE) [Concomitant]
  3. PONATINIB [Suspect]
     Active Substance: PONATINIB
     Indication: CHRONIC MYELOID LEUKAEMIA
     Route: 048
     Dates: start: 20120203, end: 20131024

REACTIONS (12)
  - Embolic stroke [None]
  - Cerebral artery stenosis [None]
  - Cerebral infarction [None]
  - Carotid artery thrombosis [None]
  - Hemianopia [None]
  - Cerebrovascular accident [None]
  - Ventricular extrasystoles [None]
  - Polyneuropathy [None]
  - Aphasia [None]
  - Visual impairment [None]
  - Carotid artery stenosis [None]
  - Hypertension [None]

NARRATIVE: CASE EVENT DATE: 20140409
